FAERS Safety Report 11817291 (Version 2)
Quarter: 2023Q4

REPORT INFORMATION
  Report Type: Spontaneous
  Country: US (occurrence: US)
  Receive Date: 20151210
  Receipt Date: 20231017
  Transmission Date: 20240110
  Serious: No
  Sender: FDA-Public Use
  Company Number: US-JNJFOC-20151110744

PATIENT
  Sex: Male
  Weight: 69 kg

DRUGS (13)
  1. RISPERDAL [Suspect]
     Active Substance: RISPERIDONE
     Indication: Autism spectrum disorder
     Route: 048
     Dates: start: 20010628
  2. RISPERDAL [Suspect]
     Active Substance: RISPERIDONE
     Indication: Tuberous sclerosis complex
     Route: 048
     Dates: start: 20030716
  3. RISPERDAL [Suspect]
     Active Substance: RISPERIDONE
     Route: 048
     Dates: start: 20080903, end: 20160318
  4. RISPERIDONE [Suspect]
     Active Substance: RISPERIDONE
     Indication: Autism spectrum disorder
     Dosage: IN VARYING DOSES OF 1MG- 2MG
     Route: 048
  5. RISPERDAL [Suspect]
     Active Substance: RISPERIDONE
     Indication: Autism spectrum disorder
     Route: 048
     Dates: start: 20081013, end: 20120824
  6. RISPERDAL [Suspect]
     Active Substance: RISPERIDONE
     Indication: Tuberous sclerosis complex
     Route: 048
     Dates: start: 20130225, end: 20160318
  7. RISPERIDONE [Suspect]
     Active Substance: RISPERIDONE
     Indication: Autism spectrum disorder
     Route: 048
     Dates: start: 20010628
  8. RISPERIDONE [Suspect]
     Active Substance: RISPERIDONE
     Indication: Tuberous sclerosis complex
     Route: 048
     Dates: start: 20030716
  9. RISPERIDONE [Suspect]
     Active Substance: RISPERIDONE
     Route: 048
     Dates: start: 20080903
  10. RISPERIDONE [Suspect]
     Active Substance: RISPERIDONE
     Route: 048
     Dates: start: 20120905, end: 20130128
  11. RISPERIDONE [Suspect]
     Active Substance: RISPERIDONE
     Route: 048
     Dates: end: 20160318
  12. RISPERDAL M-TAB [Suspect]
     Active Substance: RISPERIDONE
     Indication: Autism spectrum disorder
     Route: 048
     Dates: start: 20080923
  13. RISPERDAL M-TAB [Suspect]
     Active Substance: RISPERIDONE
     Indication: Tuberous sclerosis complex

REACTIONS (3)
  - Emotional disorder [Unknown]
  - Gynaecomastia [Unknown]
  - Abnormal weight gain [Unknown]

NARRATIVE: CASE EVENT DATE: 20110101
